FAERS Safety Report 5409422-3 (Version None)
Quarter: 2007Q3

REPORT INFORMATION
  Report Type: 
  Country: None (occurrence: None)
  Receive Date: 20070807
  Receipt Date: 20070727
  Transmission Date: 20080115
  Serious: Yes (Other)
  Sender: FDA-Public Use
  Company Number: GXKR2007GB06479

PATIENT
  Age: 22 Year
  Sex: Female

DRUGS (3)
  1. METRONIDAZOLE [Suspect]
     Dosage: 200 MG, TID, ORAL
     Route: 048
     Dates: start: 20070704, end: 20070706
  2. AMOXICILLIN [Concomitant]
  3. CHLORHEXIDINE GLUCONATE [Concomitant]

REACTIONS (5)
  - DIARRHOEA [None]
  - DIZZINESS [None]
  - HEADACHE [None]
  - MYALGIA [None]
  - POLLAKIURIA [None]
